FAERS Safety Report 9182058 (Version 1)
Quarter: 2013Q1

REPORT INFORMATION
  Report Type: Spontaneous
  Country: US (occurrence: US)
  Receive Date: 20130322
  Receipt Date: 20130322
  Transmission Date: 20140127
  Serious: No
  Sender: FDA-Public Use
  Company Number: US-009507513-1303USA011068

PATIENT
  Sex: Male

DRUGS (3)
  1. PEGINTRON [Suspect]
     Indication: HEPATITIS
     Dosage: 150 MICROGRAM, QW
     Route: 058
     Dates: start: 201301, end: 20130309
  2. RIBAPAK [Suspect]
     Dosage: UNK
  3. EUFLEXXA [Concomitant]

REACTIONS (7)
  - Somnolence [Unknown]
  - Vomiting [Unknown]
  - Confusional state [Unknown]
  - Dyspnoea [Unknown]
  - Rash [Unknown]
  - Dizziness [Unknown]
  - Nausea [Unknown]
